FAERS Safety Report 4358275-3 (Version None)
Quarter: 2004Q2

REPORT INFORMATION
  Report Type: 
  Country: None (occurrence: None)
  Receive Date: 20040514
  Receipt Date: 20040510
  Transmission Date: 20050107
  Serious: Yes (Hospitalization)
  Sender: FDA-Public Use
  Company Number: US-BRISTOL-MYERS SQUIBB COMPANY-12582979

PATIENT
  Sex: Female

DRUGS (4)
  1. CYTOXAN [Suspect]
     Indication: NON-HODGKIN'S LYMPHOMA
  2. DOXORUBICIN HCL [Suspect]
     Indication: NON-HODGKIN'S LYMPHOMA
  3. VINCRISTINE SULFATE [Suspect]
     Indication: NON-HODGKIN'S LYMPHOMA
  4. CORTICOSTEROID [Suspect]
     Indication: NON-HODGKIN'S LYMPHOMA

REACTIONS (2)
  - CHEST PAIN [None]
  - DYSPNOEA [None]
